FAERS Safety Report 17922932 (Version 1)
Quarter: 2020Q2

REPORT INFORMATION
  Report Type: Report from Study
  Country: CR (occurrence: CR)
  Receive Date: 20200622
  Receipt Date: 20200622
  Transmission Date: 20200714
  Serious: Yes (Other)
  Sender: FDA-Public Use
  Company Number: NVSC2020CR174236

PATIENT
  Age: 75 Year
  Sex: Female

DRUGS (2)
  1. EXFORGE HCT [Suspect]
     Active Substance: AMLODIPINE BESYLATE\HYDROCHLOROTHIAZIDE\VALSARTAN
     Indication: PRODUCT USED FOR UNKNOWN INDICATION
     Dosage: 10/320/25 MG
     Route: 065
     Dates: start: 2019, end: 202005
  2. EXFORGE HCT [Suspect]
     Active Substance: AMLODIPINE BESYLATE\HYDROCHLOROTHIAZIDE\VALSARTAN
     Dosage: 5/160/12.5 MG
     Route: 065
     Dates: start: 202005

REACTIONS (4)
  - Feeling abnormal [Recovering/Resolving]
  - Memory impairment [Unknown]
  - Blood pressure decreased [Recovering/Resolving]
  - Dementia Alzheimer^s type [Unknown]
